FAERS Safety Report 7558129-5 (Version None)
Quarter: 2011Q2

REPORT INFORMATION
  Report Type: 
  Country: None (occurrence: None)
  Receive Date: 20110620
  Receipt Date: 20110607
  Transmission Date: 20111010
  Serious: Yes (Other)
  Sender: FDA-Public Use
  Company Number: RO-JNJFOC-20110604207

PATIENT
  Sex: Female

DRUGS (1)
  1. REMICADE [Suspect]
     Indication: PSORIASIS
     Dosage: 3 VIALS (DOSE NOT PROVIDED)
     Route: 042
     Dates: start: 20100405, end: 20101201

REACTIONS (1)
  - BRAIN NEOPLASM [None]
